FAERS Safety Report 14586305 (Version 3)
Quarter: 2018Q2

REPORT INFORMATION
  Report Type: Report from Study
  Country: US (occurrence: US)
  Receive Date: 20180301
  Receipt Date: 20180521
  Transmission Date: 20180711
  Serious: Yes (Hospitalization)
  Sender: FDA-Public Use
  Company Number: US-BAYER-2018-035185

PATIENT
  Age: 51 Year
  Sex: Female

DRUGS (5)
  1. ADEMPAS [Suspect]
     Active Substance: RIOCIGUAT
     Indication: PULMONARY ARTERIAL HYPERTENSION
     Dosage: 2.5 MG, TID
     Route: 048
     Dates: start: 20160416, end: 20180405
  2. UPTRAVI [Suspect]
     Active Substance: SELEXIPAG
     Dosage: 200 ?G, UNK
  3. ADEMPAS [Suspect]
     Active Substance: RIOCIGUAT
     Indication: PULMONARY ARTERIAL HYPERTENSION
     Dosage: UNK
  4. OPSUMIT [Concomitant]
     Active Substance: MACITENTAN
     Dosage: UNK
  5. UPTRAVI [Suspect]
     Active Substance: SELEXIPAG
     Dosage: 800 ?G, UNK

REACTIONS (11)
  - Flushing [None]
  - Headache [None]
  - Diarrhoea [None]
  - Nausea [None]
  - Myalgia [None]
  - Dehydration [None]
  - Drug dose omission [Not Recovered/Not Resolved]
  - Product availability issue [Not Recovered/Not Resolved]
  - Dyspnoea exertional [None]
  - Pain in jaw [None]
  - Feeling abnormal [None]

NARRATIVE: CASE EVENT DATE: 2018
